FAERS Safety Report 16273131 (Version 1)
Quarter: 2019Q2

REPORT INFORMATION
  Report Type: Spontaneous
  Country: IT (occurrence: IT)
  Receive Date: 20190506
  Receipt Date: 20190506
  Transmission Date: 20190711
  Serious: Yes (Other)
  Sender: FDA-Public Use
  Company Number: IT-AUROBINDO-AUR-APL-2019-024287

PATIENT

DRUGS (1)
  1. MOXIFLOXACIN FILM-COATED TABLET [Suspect]
     Active Substance: MOXIFLOXACIN
     Indication: PNEUMONITIS
     Route: 048
     Dates: start: 20190312, end: 20190318

REACTIONS (1)
  - Toxic skin eruption [Recovered/Resolved]

NARRATIVE: CASE EVENT DATE: 20190318
